FAERS Safety Report 5186752-4 (Version None)
Quarter: 2006Q4

REPORT INFORMATION
  Report Type: 
  Country: None (occurrence: None)
  Receive Date: 20061220
  Receipt Date: 20061101
  Transmission Date: 20070319
  Serious: No
  Sender: FDA-Public Use
  Company Number: US-AMGEN-KDL198977

PATIENT
  Sex: Female

DRUGS (2)
  1. ENBREL [Suspect]
     Indication: ANKYLOSING SPONDYLITIS
     Route: 058
     Dates: start: 20061017
  2. SULFASALAZINE [Concomitant]
     Route: 048
     Dates: start: 20051101

REACTIONS (4)
  - ANXIETY [None]
  - BURNING SENSATION [None]
  - DISTURBANCE IN ATTENTION [None]
  - HEADACHE [None]
